FAERS Safety Report 17091130 (Version 1)
Quarter: 2019Q4

REPORT INFORMATION
  Report Type: Spontaneous
  Country: US (occurrence: US)
  Receive Date: 20191101
  Receipt Date: 20191101
  Transmission Date: 20200122
  Serious: No
  Sender: FDA-Public Use
  Company Number: None

PATIENT
  Age: 58 Year
  Sex: Female

DRUGS (1)
  1. IMATINIB@MESYLATE 400MG SUN PHARMACEUTICAL [Suspect]
     Active Substance: IMATINIB MESYLATE
     Route: 048
     Dates: start: 20190405

REACTIONS (2)
  - Vitreous floaters [None]
  - Eye haemorrhage [None]

NARRATIVE: CASE EVENT DATE: 201909
